FAERS Safety Report 4512890-2 (Version None)
Quarter: 2004Q4

REPORT INFORMATION
  Report Type: 
  Country: None (occurrence: None)
  Receive Date: 20041119
  Receipt Date: 20041119
  Transmission Date: 20050328
  Serious: Yes (Death)
  Sender: FDA-Public Use
  Company Number: None

PATIENT
  Age: 20 Year
  Sex: Male
  Weight: 65.7716 kg

DRUGS (1)
  1. METHADONE [Suspect]

REACTIONS (2)
  - MEDICATION ERROR [None]
  - OVERDOSE [None]
